FAERS Safety Report 8242323-4 (Version None)
Quarter: 2012Q1

REPORT INFORMATION
  Report Type: 
  Country: None (occurrence: None)
  Receive Date: 20120329
  Receipt Date: 20120321
  Transmission Date: 20120608
  Serious: Yes (Other)
  Sender: FDA-Public Use
  Company Number: JP-SANOFI-AVENTIS-2011SA066885

PATIENT
  Age: 62 Year
  Sex: Male
  Weight: 72.6 kg

DRUGS (8)
  1. LANSOPRAZOLE [Concomitant]
     Route: 048
     Dates: start: 20070704
  2. FUROSEMIDE [Concomitant]
     Dates: start: 20080710, end: 20080723
  3. OLMESARTAN MEDOXOMIL [Concomitant]
     Route: 048
     Dates: start: 20061113
  4. CEFDINIR [Concomitant]
     Route: 048
     Dates: start: 20080625, end: 20080627
  5. ASPIRIN [Concomitant]
     Route: 048
     Dates: start: 20070628
  6. SIGMART [Concomitant]
     Route: 048
     Dates: start: 20080625
  7. PLAVIX [Suspect]
     Route: 065
     Dates: start: 20080615
  8. HEPARIN [Concomitant]
     Dosage: DOSE:7000 UNIT(S)
     Route: 042
     Dates: start: 20080624, end: 20080624

REACTIONS (1)
  - CARDIAC FAILURE [None]
